FAERS Safety Report 16635929 (Version 1)
Quarter: 2019Q3

REPORT INFORMATION
  Report Type: Report from Study
  Country: US (occurrence: DE)
  Receive Date: 20190726
  Receipt Date: 20190726
  Transmission Date: 20191004
  Serious: Yes (Hospitalization, Other)
  Sender: FDA-Public Use
  Company Number: US-SUNOVION-2019SUN003086

PATIENT

DRUGS (7)
  1. BERODUAL N [Concomitant]
     Active Substance: FENOTEROL HYDROBROMIDE\IPRATROPIUM BROMIDE
     Indication: CHRONIC OBSTRUCTIVE PULMONARY DISEASE
     Dosage: 2 DF, QD, AS NEEDED
     Route: 055
     Dates: start: 20130225
  2. INDACATEROL AND GLYCOPYRROLATE [Suspect]
     Active Substance: GLYCOPYRROLATE\INDACATEROL MALEATE
     Indication: CHRONIC OBSTRUCTIVE PULMONARY DISEASE
     Dosage: 1 DF (GLYCOPYRRONIUM BROMIDE 50 MCG, INDACATEROL 110 MCG), QD
     Route: 055
     Dates: start: 20140623
  3. SALBUTAMOL CT [Concomitant]
     Indication: CHRONIC OBSTRUCTIVE PULMONARY DISEASE
     Dosage: QD AS NEEDED
     Route: 065
  4. PANTOPRAZOLE [Concomitant]
     Active Substance: PANTOPRAZOLE
     Indication: PRODUCT USED FOR UNKNOWN INDICATION
     Dosage: 40 MG, 1 IN THE MORNING PER DAY
     Route: 065
  5. NICOTINELL [Concomitant]
     Active Substance: NICOTINE
     Indication: TOBACCO ABUSE
     Dosage: 40 MG, Q24H
     Route: 065
  6. NICOTINELL [Concomitant]
     Active Substance: NICOTINE
     Dosage: 20 MG, Q24H (1 PER DAY IN THE MORNING EVERY TWO WEEKS)
     Route: 065
  7. MIFLONIDE BREEZHALER [Suspect]
     Active Substance: BUDESONIDE
     Indication: CHRONIC OBSTRUCTIVE PULMONARY DISEASE
     Dosage: 1 DF, QD
     Route: 055
     Dates: start: 20190412

REACTIONS (27)
  - Cardiovascular disorder [Unknown]
  - Type 2 diabetes mellitus [Unknown]
  - Blood creatinine decreased [Unknown]
  - Carbon monoxide diffusing capacity decreased [Unknown]
  - Glycosylated haemoglobin increased [Unknown]
  - Bundle branch block right [Unknown]
  - General physical health deterioration [Unknown]
  - Respiratory failure [Unknown]
  - Wheezing [Unknown]
  - Aortic arteriosclerosis [Unknown]
  - Aortic elongation [Unknown]
  - Forced expiratory volume decreased [Unknown]
  - Productive cough [Unknown]
  - Lung hyperinflation [Unknown]
  - Bronchitis chronic [Unknown]
  - Blood glucose increased [Unknown]
  - Osteoporosis [Unknown]
  - PO2 decreased [Unknown]
  - Kyphosis [Unknown]
  - Chronic obstructive pulmonary disease [Recovering/Resolving]
  - Dyspnoea exertional [Unknown]
  - Hypercapnia [Unknown]
  - Chest pain [Unknown]
  - Emphysema [Unknown]
  - Hypertension [Unknown]
  - Bundle branch block left [Unknown]
  - Spondylitis [Unknown]

NARRATIVE: CASE EVENT DATE: 20190420
